FAERS Safety Report 5841231-3 (Version None)
Quarter: 2008Q3

REPORT INFORMATION
  Report Type: 
  Country: None (occurrence: None)
  Receive Date: 20080812
  Receipt Date: 20080807
  Transmission Date: 20090109
  Serious: Yes (Death)
  Sender: FDA-Public Use
  Company Number: PHHY2008RU16616

PATIENT
  Sex: Male

DRUGS (4)
  1. LESCOL [Suspect]
     Dosage: 80 MG DAILY
  2. CARVEDILOL [Concomitant]
     Dosage: 12.5 MG IN MORNING, 6.25MG IN EVENING
     Dates: start: 20070904
  3. PLAVIX [Concomitant]
     Dosage: 75MG/ DAY
     Dates: start: 20070904
  4. ZOCARDIS [Concomitant]
     Dosage: 7.5MG/ DAY
     Dates: start: 20070904

REACTIONS (2)
  - MYOCARDIAL INFARCTION [None]
  - MYOCARDIAL ISCHAEMIA [None]
